FAERS Safety Report 15815220 (Version 2)
Quarter: 2020Q4

REPORT INFORMATION
  Report Type: Report from Study
  Country: None (occurrence: US)
  Receive Date: 20190112
  Receipt Date: 20201231
  Transmission Date: 20210113
  Serious: Yes (Death)
  Sender: FDA-Public Use
  Company Number: US-ABBVIE-19K-163-2622479-00

PATIENT
  Sex: Male

DRUGS (3)
  1. VENETOCLAX. [Suspect]
     Active Substance: VENETOCLAX
     Indication: ACUTE MYELOID LEUKAEMIA RECURRENT
  2. VENETOCLAX. [Suspect]
     Active Substance: VENETOCLAX
     Indication: ACUTE MYELOID LEUKAEMIA REFRACTORY
  3. VENETOCLAX. [Suspect]
     Active Substance: VENETOCLAX
     Indication: ACUTE MYELOID LEUKAEMIA
     Dosage: TAKE 2 TABLETS BY MOUTH EVERY DAY
     Route: 048

REACTIONS (2)
  - Death [Fatal]
  - Off label use [Unknown]
